FAERS Safety Report 7399815-X (Version None)
Quarter: 2011Q2

REPORT INFORMATION
  Report Type: 
  Country: None (occurrence: None)
  Receive Date: 20110407
  Receipt Date: 20110323
  Transmission Date: 20111010
  Serious: Yes (Hospitalization)
  Sender: FDA-Public Use
  Company Number: US-JNJFOC-20110311345

PATIENT
  Sex: Female
  Weight: 32.07 kg

DRUGS (4)
  1. AZATHIOPRINE [Concomitant]
  2. INFLIXIMAB, RECOMBINANT [Suspect]
     Route: 042
  3. IRON [Concomitant]
  4. INFLIXIMAB, RECOMBINANT [Suspect]
     Indication: INFLAMMATORY BOWEL DISEASE
     Route: 042

REACTIONS (1)
  - SUBDIAPHRAGMATIC ABSCESS [None]
